FAERS Safety Report 11824550 (Version 1)
Quarter: 2015Q4

REPORT INFORMATION
  Report Type: Spontaneous
  Country: None (occurrence: US)
  Receive Date: 20151210
  Receipt Date: 20151210
  Transmission Date: 20160305
  Serious: No
  Sender: FDA-Public Use
  Company Number: US-BRECKENRIDGE PHARMACEUTICAL, INC.-1045342

PATIENT
  Age: 82 Year
  Sex: Female
  Weight: 77.27 kg

DRUGS (1)
  1. AZELASTINE [Suspect]
     Active Substance: AZELASTINE
     Indication: RHINITIS ALLERGIC
     Route: 045
     Dates: start: 20151207, end: 20151208

REACTIONS (3)
  - Toxicity to various agents [None]
  - Dermatitis allergic [Recovered/Resolved]
  - Dry mouth [Recovered/Resolved]

NARRATIVE: CASE EVENT DATE: 20151207
